FAERS Safety Report 6167819-0 (Version None)
Quarter: 2009Q2

REPORT INFORMATION
  Report Type: 
  Country: None (occurrence: None)
  Receive Date: 20090427
  Receipt Date: 20090420
  Transmission Date: 20091009
  Serious: Yes (Other)
  Sender: FDA-Public Use
  Company Number: US-JNJFOC-20090202855

PATIENT
  Sex: Male
  Weight: 125.65 kg

DRUGS (10)
  1. TOPAMAX [Suspect]
     Route: 048
  2. TOPAMAX [Suspect]
     Indication: EPILEPSY
     Dosage: 200 MG AM AND 250 MG PM
     Route: 048
  3. TRILEPTAL [Concomitant]
     Indication: EPILEPSY
  4. KLONOPIN [Concomitant]
     Indication: EPILEPSY
     Dosage: 0.5 MG IN MORNING AND 2 MG IN EVENING
  5. EFFEXOR [Concomitant]
  6. NIASPAN [Concomitant]
  7. LORATADINE [Concomitant]
  8. TRICOR [Concomitant]
  9. MULTI-VITAMIN [Concomitant]
  10. SINEMET [Concomitant]

REACTIONS (3)
  - AMMONIA INCREASED [None]
  - CONVULSION [None]
  - DRUG LEVEL BELOW THERAPEUTIC [None]
